FAERS Safety Report 9696461 (Version 1)
Quarter: 2013Q4

REPORT INFORMATION
  Report Type: Spontaneous
  Country: US (occurrence: US)
  Receive Date: 20131119
  Receipt Date: 20131119
  Transmission Date: 20140711
  Serious: Yes (Hospitalization, Other)
  Sender: FDA-Public Use
  Company Number: US-MYLANLABS-2013S1025307

PATIENT
  Age: 45 Year
  Sex: Female

DRUGS (2)
  1. QUININE [Suspect]
     Indication: OVERDOSE
     Route: 048
  2. CITALOPRAM [Suspect]

REACTIONS (7)
  - Overdose [Recovering/Resolving]
  - Convulsion [Unknown]
  - Hypotension [Recovering/Resolving]
  - Electrocardiogram QRS complex prolonged [Unknown]
  - Electrocardiogram QT prolonged [Unknown]
  - Arrhythmia [Unknown]
  - Retinal toxicity [Recovering/Resolving]
